FAERS Safety Report 18261079 (Version 1)
Quarter: 2020Q3

REPORT INFORMATION
  Report Type: Report from Study
  Country: IT (occurrence: IT)
  Receive Date: 20200914
  Receipt Date: 20200914
  Transmission Date: 20201103
  Serious: Yes (Hospitalization)
  Sender: FDA-Public Use
  Company Number: IT-TEVA-2020-IT-1826227

PATIENT
  Age: 55 Year
  Sex: Female

DRUGS (5)
  1. RESILIENT 83 MG COMPRESSE A RILASCIO PROLUNGATO [Concomitant]
     Active Substance: LITHIUM SULFATE
  2. MUTABON MITE 2 MG + 10 MG COMPRESSE RIVESTITE CON FILM [Suspect]
     Active Substance: AMITRIPTYLINE HYDROCHLORIDE\PERPHENAZINE
     Dosage: 14 DOSAGE FORMS
     Dates: start: 20200630, end: 20200630
  3. TRITTICO 75 MG COMPRESSE A RILASCIO PROLUNGATO [Suspect]
     Active Substance: TRAZODONE HYDROCHLORIDE
     Dosage: 45 DOSAGE FORMS
     Dates: start: 20200630, end: 20200630
  4. DULOXETINE HYDROCHLORIDE. [Suspect]
     Active Substance: DULOXETINE HYDROCHLORIDE
     Dosage: 600MG
     Dates: start: 20200630, end: 20200630
  5. EN [Suspect]
     Active Substance: DELORAZEPAM
     Dosage: 20 DOSAGE FORMS
     Dates: start: 20200630, end: 20200630

REACTIONS (1)
  - Sopor [Recovering/Resolving]

NARRATIVE: CASE EVENT DATE: 20200630
